FAERS Safety Report 5423546-6 (Version None)
Quarter: 2007Q3

REPORT INFORMATION
  Report Type: 
  Country: None (occurrence: None)
  Receive Date: 20070823
  Receipt Date: 20070316
  Transmission Date: 20080115
  Serious: No
  Sender: FDA-Public Use
  Company Number: US-ASTRAZENECA-2005UW02445

PATIENT
  Age: 66 Year
  Sex: Female

DRUGS (5)
  1. IRESSA [Suspect]
     Indication: LUNG NEOPLASM MALIGNANT
     Route: 048
  2. ATENOLOL [Concomitant]
  3. PLAVIX [Concomitant]
  4. LIPITOR [Concomitant]
  5. ANTIHYPERTENSIVE [Concomitant]
     Indication: HYPERTENSION

REACTIONS (6)
  - ARTHRALGIA [None]
  - BONE PAIN [None]
  - DIARRHOEA [None]
  - DRY SKIN [None]
  - MUSCLE SPASMS [None]
  - ONYCHOMADESIS [None]
